FAERS Safety Report 25774466 (Version 1)
Quarter: 2025Q3

REPORT INFORMATION
  Report Type: Report from Study
  Country: AR (occurrence: AR)
  Receive Date: 20250908
  Receipt Date: 20250908
  Transmission Date: 20251021
  Serious: Yes (Other)
  Sender: JOHNSON AND JOHNSON
  Company Number: AR-JNJFOC-20250906627

PATIENT
  Age: 74 Year
  Sex: Female
  Weight: 50 kg

DRUGS (1)
  1. SIMPONI [Suspect]
     Active Substance: GOLIMUMAB
     Indication: Rheumatoid arthritis
     Route: 041
     Dates: start: 20170810, end: 20250502

REACTIONS (3)
  - Cardiac pacemaker insertion [Unknown]
  - Venous stenosis [Unknown]
  - Viral infection [Unknown]

NARRATIVE: CASE EVENT DATE: 20200101
